FAERS Safety Report 8991206 (Version 2)
Quarter: 2013Q1

REPORT INFORMATION
  Report Type: Spontaneous
  Country: US (occurrence: None)
  Receive Date: 20121219
  Receipt Date: 20130122
  Transmission Date: 20140127
  Serious: Yes (Hospitalization)
  Sender: FDA-Public Use
  Company Number: 2012-1521

PATIENT
  Age: 57 Year
  Sex: Female
  Weight: 74.62 kg

DRUGS (3)
  1. KYPROLIS [Suspect]
     Indication: PLASMA CELL MYELOMA
     Dosage: (DAYS 1, 2, 8, 9)
     Route: 042
     Dates: start: 20120906, end: 20120914
  2. ACYCLOVIR (ACICLOVIR) (ACICLOVIR) [Concomitant]
  3. BACTRIM (SULFAMETHOXAZOLE) (SULFAMETHOXAZOLE) [Concomitant]

REACTIONS (1)
  - Pancytopenia [None]
